FAERS Safety Report 21792036 (Version 2)
Quarter: 2023Q1

REPORT INFORMATION
  Report Type: Report from Study
  Country: US (occurrence: US)
  Receive Date: 20221229
  Receipt Date: 20230131
  Transmission Date: 20230417
  Serious: No
  Sender: FDA-Public Use
  Company Number: US-ABBVIE-4217548

PATIENT
  Sex: Female

DRUGS (2)
  1. HUMIRA [Suspect]
     Active Substance: ADALIMUMAB
     Indication: Rheumatoid arthritis
     Dosage: CITRATE FREE
     Route: 058
  2. HUMIRA [Suspect]
     Active Substance: ADALIMUMAB
     Route: 058

REACTIONS (10)
  - Sneezing [Unknown]
  - Influenza [Recovered/Resolved]
  - Allergic cough [Recovered/Resolved]
  - Rheumatoid arthritis [Unknown]
  - Headache [Recovered/Resolved]
  - Exposure to communicable disease [Unknown]
  - Swelling [Unknown]
  - Pyrexia [Recovered/Resolved]
  - Fatigue [Unknown]
  - Rhinorrhoea [Recovered/Resolved]
